FAERS Safety Report 7883871-6 (Version None)
Quarter: 2011Q4

REPORT INFORMATION
  Report Type: 
  Country: None (occurrence: None)
  Receive Date: 20111102
  Receipt Date: 20111011
  Transmission Date: 20120403
  Serious: Yes (Hospitalization)
  Sender: FDA-Public Use
  Company Number: CA-JNJFOC-20111012699

PATIENT
  Sex: Female
  Weight: 86.5 kg

DRUGS (7)
  1. MATERNA [Concomitant]
  2. CONTRACEPTIVES [Concomitant]
     Dosage: CEASED TAKING CONTRACEPTIVES FOR 3 MONTHS
  3. PANTOPRAZOLE SODIUM [Concomitant]
  4. REACTINE [Concomitant]
     Dosage: TAKEN REGULARLY  ENT RX YEARLY
  5. CELEXA [Concomitant]
  6. SERAX [Concomitant]
  7. REMICADE [Suspect]
     Indication: CROHN'S DISEASE
     Route: 042

REACTIONS (1)
  - OVARIAN CYST RUPTURED [None]
